FAERS Safety Report 9387146 (Version 1)
Quarter: 2013Q3

REPORT INFORMATION
  Report Type: Spontaneous
  Country: FR (occurrence: FR)
  Receive Date: 20130708
  Receipt Date: 20130708
  Transmission Date: 20140515
  Serious: Yes (Hospitalization)
  Sender: FDA-Public Use
  Company Number: FR-NOVOPROD-382085

PATIENT
  Age: 71 Year
  Sex: Female

DRUGS (5)
  1. NOVONORM [Suspect]
     Indication: DIABETES MELLITUS
     Dosage: 1 MG, TID
     Route: 048
     Dates: start: 20121215, end: 20130103
  2. NOVATREX /00113801/ [Suspect]
     Indication: RHEUMATOID ARTHRITIS
     Dosage: 12.5 MG PER WEEK (5 PHARMACEUTICAL DOSES PER WEEK)
     Route: 048
     Dates: start: 2012, end: 20121220
  3. PRADAXA [Suspect]
     Indication: PRODUCT USED FOR UNKNOWN INDICATION
     Dosage: UNK
     Route: 048
     Dates: end: 20130103
  4. GLUCOPHAGE [Suspect]
     Indication: DIABETES MELLITUS
     Dosage: UNK
     Route: 048
     Dates: end: 20121215
  5. DIAMICRON [Suspect]
     Indication: DIABETES MELLITUS
     Dosage: UNK
     Route: 065
     Dates: end: 20121215

REACTIONS (3)
  - Anaemia [Not Recovered/Not Resolved]
  - Neutropenia [Recovered/Resolved]
  - Thrombocytopenia [Recovered/Resolved]
